FAERS Safety Report 17195876 (Version 1)
Quarter: 2019Q4

REPORT INFORMATION
  Report Type: Spontaneous
  Country: US (occurrence: US)
  Receive Date: 20191224
  Receipt Date: 20191224
  Transmission Date: 20200122
  Serious: No
  Sender: FDA-Public Use
  Company Number: US-TORRENT-00009565

PATIENT
  Age: 20 Year
  Sex: Male
  Weight: 48 kg

DRUGS (1)
  1. ESCITALOPRAM [Suspect]
     Active Substance: ESCITALOPRAM OXALATE
     Indication: ANXIETY
     Route: 048
     Dates: start: 20191212

REACTIONS (3)
  - Fatigue [Unknown]
  - Insomnia [Unknown]
  - Anorgasmia [Unknown]

NARRATIVE: CASE EVENT DATE: 20191214
